FAERS Safety Report 6861423-4 (Version None)
Quarter: 2010Q3

REPORT INFORMATION
  Report Type: 
  Country: None (occurrence: None)
  Receive Date: 20100720
  Receipt Date: 20100712
  Transmission Date: 20110219
  Serious: Yes (Other)
  Sender: FDA-Public Use
  Company Number: US-AMGEN-QUU421021

PATIENT
  Sex: Male
  Weight: 118.9 kg

DRUGS (10)
  1. ENBREL [Suspect]
     Indication: ANKYLOSING SPONDYLITIS
     Dates: start: 19990101, end: 20100401
  2. METHOTREXATE [Concomitant]
     Indication: ANKYLOSING SPONDYLITIS
     Dosage: UNKNOWN
     Dates: end: 20100326
  3. CLONAZEPAM [Concomitant]
  4. FLEXERIL [Concomitant]
  5. ESOMEPRAZOLE MAGNESIUM [Concomitant]
  6. LISINOPRIL [Concomitant]
  7. MECLIZINE [Concomitant]
  8. IMITREX [Concomitant]
  9. LORTAB [Concomitant]
  10. VOLTAREN [Concomitant]

REACTIONS (15)
  - ARTHRITIS REACTIVE [None]
  - BACK INJURY [None]
  - BLINDNESS [None]
  - CENTRAL NERVOUS SYSTEM LESION [None]
  - DEMYELINATION [None]
  - DIPLOPIA [None]
  - DISABILITY [None]
  - DRUG INEFFECTIVE [None]
  - FATIGUE [None]
  - GLIOMA [None]
  - HEADACHE [None]
  - HYPOAESTHESIA [None]
  - INTERVERTEBRAL DISC PROTRUSION [None]
  - POLYARTHRITIS [None]
  - WEIGHT INCREASED [None]
